FAERS Safety Report 10215105 (Version 1)
Quarter: 2014Q2

REPORT INFORMATION
  Report Type: Spontaneous
  Country: US (occurrence: US)
  Receive Date: 20140603
  Receipt Date: 20140603
  Transmission Date: 20141212
  Serious: No
  Sender: FDA-Public Use
  Company Number: US-PFIZER INC-2014149718

PATIENT
  Age: 34 Year
  Sex: Female
  Weight: 68.03 kg

DRUGS (3)
  1. PRISTIQ [Suspect]
     Indication: DEPRESSION
     Dosage: 100 MG, 1X/DAY
     Route: 048
     Dates: start: 2010
  2. PRISTIQ [Suspect]
     Dosage: 100 MG, 1X/DAY
     Dates: end: 201405
  3. WELLBUTRIN [Concomitant]
     Indication: DEPRESSION
     Dosage: UNK

REACTIONS (3)
  - Depression [Unknown]
  - Drug withdrawal syndrome [Unknown]
  - Pyrexia [Recovered/Resolved]
